FAERS Safety Report 21690848 (Version 3)
Quarter: 2025Q3

REPORT INFORMATION
  Report Type: Report from Study
  Country: CA (occurrence: CA)
  Receive Date: 20221207
  Receipt Date: 20250720
  Transmission Date: 20251021
  Serious: Yes (Death, Hospitalization, Other)
  Sender: HLS THERAPEUTICS
  Company Number: CA-HLS-202000122

PATIENT
  Sex: Male

DRUGS (1)
  1. CLOZARIL [Suspect]
     Active Substance: CLOZAPINE
     Indication: Product used for unknown indication
     Route: 048
     Dates: start: 19930518

REACTIONS (3)
  - Neoplasm malignant [Unknown]
  - Death [Fatal]
  - Malaise [Unknown]
